FAERS Safety Report 13066028 (Version 2)
Quarter: 2017Q1

REPORT INFORMATION
  Report Type: Report from Study
  Country: CA (occurrence: CA)
  Receive Date: 20161227
  Receipt Date: 20170102
  Transmission Date: 20170428
  Serious: No
  Sender: FDA-Public Use
  Company Number: CA-JNJFOC-20160902185

PATIENT
  Age: 16 Year
  Sex: Male
  Weight: 63.5 kg

DRUGS (5)
  1. REMICADE [Suspect]
     Active Substance: INFLIXIMAB
     Indication: COLITIS ULCERATIVE
     Route: 042
     Dates: start: 20160804
  2. LANSOPRAZOLE. [Concomitant]
     Active Substance: LANSOPRAZOLE
     Indication: PRODUCT USED FOR UNKNOWN INDICATION
     Route: 065
  3. REMICADE [Suspect]
     Active Substance: INFLIXIMAB
     Indication: COLITIS ULCERATIVE
     Route: 042
     Dates: start: 20160901
  4. METHOTREXATE. [Concomitant]
     Active Substance: METHOTREXATE
     Indication: PRODUCT USED FOR UNKNOWN INDICATION
     Dosage: 4 TABLETS EVERY WEEK
     Route: 065
  5. REMICADE [Suspect]
     Active Substance: INFLIXIMAB
     Indication: COLITIS ULCERATIVE
     Route: 042
     Dates: start: 20160610, end: 20160901

REACTIONS (8)
  - Product use issue [Unknown]
  - Haematochezia [Unknown]
  - Abdominal pain [Unknown]
  - Off label use [Unknown]
  - Drug ineffective [Unknown]
  - General physical health deterioration [Unknown]
  - Colitis ulcerative [Not Recovered/Not Resolved]
  - Frequent bowel movements [Unknown]

NARRATIVE: CASE EVENT DATE: 201608
